FAERS Safety Report 8733837 (Version 2)
Quarter: 2012Q4

REPORT INFORMATION
  Report Type: 
  Country: AR (occurrence: AR)
  Receive Date: 20120821
  Receipt Date: 20120912
  Transmission Date: 20130627
  Serious: Yes (Other)
  Sender: FDA-Public Use
  Company Number: PHHY2012AR071195

PATIENT
  Age: 66 Year
  Sex: Female

DRUGS (3)
  1. EXFORGE [Suspect]
     Indication: HYPERTENSION
     Dosage: 1.5 DF (160mg vals/5 mg amlo), per day
  2. EXFORGE [Suspect]
     Dosage: 0.25 DF (vals 160 mg, amlo 5 mg), UNK
  3. EXFORGE D [Suspect]
     Dosage: 0.5 DF, per day

REACTIONS (7)
  - Pneumonia [Recovered/Resolved]
  - Pyrexia [Recovered/Resolved]
  - Cough [Recovered/Resolved]
  - Bronchospasm [Recovered/Resolved]
  - Nasopharyngitis [Recovered/Resolved]
  - Hypertension [Recovered/Resolved]
  - Wrong technique in drug usage process [Unknown]
